FAERS Safety Report 6792990-7 (Version None)
Quarter: 2010Q2

REPORT INFORMATION
  Report Type: 
  Country: None (occurrence: None)
  Receive Date: 20100624
  Receipt Date: 20081030
  Transmission Date: 20101027
  Serious: No
  Sender: FDA-Public Use
  Company Number: US-PFIZER INC-2008092683

PATIENT
  Sex: Male
  Weight: 90.909 kg

DRUGS (10)
  1. GEODON [Suspect]
     Indication: BIPOLAR DISORDER
     Dates: start: 20040101
  2. METFORMIN/PIOGLITAZONE [Concomitant]
  3. ANDROGEL [Concomitant]
  4. DEPAKOTE [Concomitant]
  5. LANTUS [Concomitant]
  6. LISINOPRIL [Concomitant]
  7. LOVASTATIN [Concomitant]
  8. OMEGA-3 MARINE TRIGLYCERIDES [Concomitant]
  9. PAXIL [Concomitant]
  10. SYNTHROID [Concomitant]

REACTIONS (2)
  - DRUG EFFECT DECREASED [None]
  - INAPPROPRIATE SCHEDULE OF DRUG ADMINISTRATION [None]
